FAERS Safety Report 6367759-8 (Version None)
Quarter: 2009Q3

REPORT INFORMATION
  Report Type: 
  Country: None (occurrence: None)
  Receive Date: 20090921
  Receipt Date: 20090909
  Transmission Date: 20100115
  Serious: Yes (Other)
  Sender: FDA-Public Use
  Company Number: US-ELI_LILLY_AND_COMPANY-US200905004704

PATIENT
  Sex: Female

DRUGS (1)
  1. STRATTERA [Suspect]
     Indication: ATTENTION DEFICIT/HYPERACTIVITY DISORDER
     Dosage: 25 MG, UNKNOWN
     Route: 065
     Dates: start: 20090519, end: 20090519

REACTIONS (14)
  - AGITATION [None]
  - DIZZINESS [None]
  - DYSKINESIA [None]
  - FATIGUE [None]
  - FEAR OF DEATH [None]
  - HEART RATE INCREASED [None]
  - HYPOTENSION [None]
  - IMPAIRED DRIVING ABILITY [None]
  - INSOMNIA [None]
  - MICTURITION FREQUENCY DECREASED [None]
  - NOCTURNAL FEAR [None]
  - RESTLESSNESS [None]
  - URINE OUTPUT DECREASED [None]
  - WEIGHT INCREASED [None]
